FAERS Safety Report 7105491-3 (Version None)
Quarter: 2010Q4

REPORT INFORMATION
  Report Type: 
  Country: None (occurrence: None)
  Receive Date: 20101116
  Receipt Date: 20101110
  Transmission Date: 20110411
  Serious: Yes (Death, Other)
  Sender: FDA-Public Use
  Company Number: PT-CELGENEUS-130-50794-10111426

PATIENT

DRUGS (1)
  1. VIDAZA [Suspect]
     Route: 065
     Dates: start: 20050101

REACTIONS (13)
  - ACUTE MYELOID LEUKAEMIA [None]
  - ANAEMIA [None]
  - CARDIAC FAILURE [None]
  - FEBRILE NEUTROPENIA [None]
  - MYELODYSPLASTIC SYNDROME [None]
  - MYELODYSPLASTIC SYNDROME TRANSFORMATION [None]
  - NAUSEA [None]
  - NEUTROPENIA [None]
  - OROPHARYNGEAL CANDIDIASIS [None]
  - PNEUMONIA [None]
  - SKIN TOXICITY [None]
  - THROMBOCYTOPENIA [None]
  - TRACHEOBRONCHITIS [None]
